FAERS Safety Report 17631649 (Version 1)
Quarter: 2020Q2

REPORT INFORMATION
  Report Type: Spontaneous
  Country: IT (occurrence: IT)
  Receive Date: 20200406
  Receipt Date: 20200406
  Transmission Date: 20200713
  Serious: Yes (Other)
  Sender: FDA-Public Use
  Company Number: IT-FRESENIUS KABI-FK202003375

PATIENT
  Age: 78 Year
  Sex: Female

DRUGS (3)
  1. ZOLEDRONIC ACID (MANUFACTURER UNKNOWN) [Suspect]
     Active Substance: ZOLEDRONIC ACID
     Indication: ADENOCARCINOMA
     Route: 042
     Dates: start: 201706
  2. NIVOLUMAB [Concomitant]
     Active Substance: NIVOLUMAB
     Route: 065
     Dates: start: 201808
  3. NIVOLUMAB [Concomitant]
     Active Substance: NIVOLUMAB
     Indication: ADENOCARCINOMA
     Route: 065
     Dates: start: 20170925

REACTIONS (3)
  - Hydronephrosis [Unknown]
  - Lithiasis [Unknown]
  - Blood creatinine increased [Unknown]

NARRATIVE: CASE EVENT DATE: 201806
